FAERS Safety Report 22092277 (Version 1)
Quarter: 2023Q1

REPORT INFORMATION
  Report Type: Spontaneous
  Country: NL (occurrence: NL)
  Receive Date: 20230314
  Receipt Date: 20230314
  Transmission Date: 20230417
  Serious: Yes (Hospitalization)
  Sender: FDA-Public Use
  Company Number: NL-AMGEN-NLDSP2023041666

PATIENT
  Sex: Male
  Weight: 110 kg

DRUGS (1)
  1. ADALIMUMAB [Suspect]
     Active Substance: ADALIMUMAB
     Indication: Crohn^s disease
     Dosage: 1X PER 2 WEEKS
     Route: 065
     Dates: start: 20221101

REACTIONS (1)
  - Sensory disturbance [Recovering/Resolving]
